FAERS Safety Report 23550057 (Version 1)
Quarter: 2024Q1

REPORT INFORMATION
  Report Type: Spontaneous
  Country: US (occurrence: None)
  Receive Date: 20240220
  Receipt Date: 20240220
  Transmission Date: 20240410
  Serious: Yes (Disabling)
  Sender: FDA-Public Use
  Company Number: None

PATIENT
  Sex: 0

DRUGS (1)
  1. TESTOSTERONE [Suspect]
     Active Substance: TESTOSTERONE
     Route: 030

REACTIONS (10)
  - Product contamination physical [None]
  - Product closure issue [None]
  - Product preparation issue [None]
  - Cellulitis [None]
  - Infection [None]
  - Pyrexia [None]
  - Chills [None]
  - Pain [None]
  - Injection site erythema [None]
  - Injection site warmth [None]

NARRATIVE: CASE EVENT DATE: 20240131
